FAERS Safety Report 11202067 (Version 2)
Quarter: 2015Q3

REPORT INFORMATION
  Report Type: Spontaneous
  Country: JP (occurrence: JP)
  Receive Date: 20150619
  Receipt Date: 20150807
  Transmission Date: 20151125
  Serious: Yes (Hospitalization)
  Sender: FDA-Public Use
  Company Number: JP-TAKEDA-2015TJP010625

PATIENT
  Age: 74 Year
  Sex: Male

DRUGS (5)
  1. BAYASPIRIN [Concomitant]
     Active Substance: ASPIRIN
     Dosage: UNK
     Route: 048
  2. NESINA [Suspect]
     Active Substance: ALOGLIPTIN BENZOATE
     Indication: DIABETES MELLITUS
     Dosage: UNK
     Route: 048
     Dates: start: 20141216, end: 20150528
  3. GLIMICRON [Concomitant]
     Active Substance: GLICLAZIDE
     Dosage: UNK
     Route: 048
  4. AMLODIPINE                         /00972402/ [Concomitant]
     Active Substance: AMLODIPINE BESYLATE
     Dosage: UNK
     Route: 048
  5. AMARYL [Concomitant]
     Active Substance: GLIMEPIRIDE
     Dosage: UNK
     Route: 048

REACTIONS (2)
  - Alanine aminotransferase increased [Not Recovered/Not Resolved]
  - Dermatitis bullous [Not Recovered/Not Resolved]

NARRATIVE: CASE EVENT DATE: 20150528
